FAERS Safety Report 4481530-3 (Version None)
Quarter: 2004Q4

REPORT INFORMATION
  Report Type: 
  Country: None (occurrence: None)
  Receive Date: 20041021
  Receipt Date: 20041004
  Transmission Date: 20050328
  Serious: Yes (Hospitalization)
  Sender: FDA-Public Use
  Company Number: 2004-0007582

PATIENT
  Age: 56 Year
  Sex: Male

DRUGS (14)
  1. VIREAD [Suspect]
     Indication: HIV INFECTION
     Dosage: 300 MG, 1 IN 1 D, ORAL
     Route: 048
     Dates: start: 20040701, end: 20040712
  2. VIREAD [Suspect]
     Indication: HIV INFECTION
     Dosage: 300 MG, 1 IN 1 D, ORAL
     Route: 048
     Dates: start: 20040716, end: 20040718
  3. VOLTAREN [Suspect]
     Dosage: ORAL
     Route: 048
     Dates: start: 20040711, end: 20040714
  4. VOLTAREN [Suspect]
     Dosage: 1 IN 1 D, ORAL
     Route: 048
     Dates: start: 20040716, end: 20040718
  5. NORVIR [Suspect]
     Dosage: ORAL
     Route: 048
     Dates: start: 20040701, end: 20040712
  6. NORVIR [Suspect]
     Dosage: ORAL
     Route: 048
     Dates: start: 20040716, end: 20040718
  7. SUSTIVA [Suspect]
     Dosage: ORAL
     Route: 048
     Dates: start: 20040701, end: 20040712
  8. SUSTIVA [Suspect]
     Dosage: ORAL
     Route: 048
     Dates: start: 20040716, end: 20040718
  9. AGENERASE [Suspect]
     Dosage: ORAL
     Route: 048
     Dates: start: 20040701, end: 20040712
  10. AGENERASE [Suspect]
     Dosage: ORAL
     Route: 048
     Dates: start: 20040716, end: 20040718
  11. KALETRA [Suspect]
     Dosage: ORAL
     Route: 048
     Dates: start: 20040701, end: 20040712
  12. KALETRA [Suspect]
     Dosage: ORAL
     Route: 048
     Dates: start: 20040716, end: 20040718
  13. OMEPRAZOLE [Concomitant]
  14. BACTRIM [Concomitant]

REACTIONS (12)
  - ACUTE PULMONARY OEDEMA [None]
  - CONDITION AGGRAVATED [None]
  - DIALYSIS [None]
  - DYSPNOEA [None]
  - GOUT [None]
  - HYPERKALAEMIA [None]
  - IMMUNE SYSTEM DISORDER [None]
  - NEPHRITIS INTERSTITIAL [None]
  - RASH [None]
  - RENAL FAILURE ACUTE [None]
  - RENAL TUBULAR NECROSIS [None]
  - SENSE OF OPPRESSION [None]
